FAERS Safety Report 16059080 (Version 1)
Quarter: 2019Q1

REPORT INFORMATION
  Report Type: Spontaneous
  Country: GB (occurrence: GB)
  Receive Date: 20190311
  Receipt Date: 20190311
  Transmission Date: 20190418
  Serious: Yes (Other)
  Sender: FDA-Public Use
  Company Number: GB-WHANIN PHARM. CO., LTD.-2019M1018235

PATIENT
  Sex: Male

DRUGS (17)
  1. CLOZARIL [Suspect]
     Active Substance: CLOZAPINE
     Dosage: 300 UNK
     Dates: start: 201605
  2. HALOPERIDOL CF [Concomitant]
     Dosage: 8 MILLIGRAM
     Dates: start: 201609
  3. HALOPERIDOL CF [Concomitant]
     Dosage: 10 MILLIGRAM, QD
     Dates: start: 201608
  4. HALOPERIDOL CF [Concomitant]
     Dosage: 10 MILLIGRAM, AM
     Dates: start: 201609
  5. CLOZARIL [Suspect]
     Active Substance: CLOZAPINE
     Dosage: 175 MILLIGRAM, PM
     Dates: start: 201602
  6. CLOZARIL [Suspect]
     Active Substance: CLOZAPINE
     Dosage: 300 UNK
     Dates: start: 201602
  7. HALOPERIDOL CF [Concomitant]
     Dosage: 10 MILLIGRAM, QD
     Dates: start: 201811
  8. SERTRALINE [Concomitant]
     Active Substance: SERTRALINE HYDROCHLORIDE
     Indication: PRODUCT USED FOR UNKNOWN INDICATION
     Dosage: 150 MILLIGRAM, TID
     Route: 048
  9. CLOZARIL [Suspect]
     Active Substance: CLOZAPINE
     Dosage: 100 MILLIGRAM, AM
     Dates: start: 201602
  10. CLOZARIL [Suspect]
     Active Substance: CLOZAPINE
     Indication: SCHIZOPHRENIA
     Dosage: UNK
     Route: 048
     Dates: start: 201604, end: 201605
  11. HALOPERIDOL CF [Concomitant]
     Indication: PRODUCT USED FOR UNKNOWN INDICATION
     Dosage: 5 MILLIGRAM, QD
     Route: 048
     Dates: start: 201611
  12. HALOPERIDOL CF [Concomitant]
     Dosage: UNK
     Dates: start: 201611
  13. HALOPERIDOL CF [Concomitant]
     Dosage: 150 UNK
     Dates: start: 201610
  14. PROCYCLIDINE [Concomitant]
     Active Substance: PROCYCLIDINE
     Dosage: 5 MILLIGRAM, QD
     Route: 048
  15. CLOZARIL [Suspect]
     Active Substance: CLOZAPINE
     Dosage: 75 MILLIGRAM, QD
     Route: 048
     Dates: start: 20190212
  16. CLONAZEPAM. [Concomitant]
     Active Substance: CLONAZEPAM
     Indication: PRODUCT USED FOR UNKNOWN INDICATION
     Dosage: 1 MILLIGRAM, TID
     Route: 048
  17. FORTISIP [Concomitant]
     Active Substance: CARBOHYDRATES\FATTY ACIDS\MINERALS\PROTEIN\VITAMINS
     Indication: PRODUCT USED FOR UNKNOWN INDICATION
     Dosage: 200 MILLILITER, TID
     Route: 048

REACTIONS (4)
  - Arrhythmia [Unknown]
  - Rash erythematous [Recovering/Resolving]
  - Tachycardia [Recovering/Resolving]
  - Blood pressure immeasurable [Unknown]

NARRATIVE: CASE EVENT DATE: 2016
